FAERS Safety Report 5736617-1 (Version None)
Quarter: 2008Q2

REPORT INFORMATION
  Report Type: 
  Country: None (occurrence: None)
  Receive Date: 20080513
  Receipt Date: 20080502
  Transmission Date: 20081010
  Serious: Yes (Hospitalization)
  Sender: FDA-Public Use
  Company Number: US-TYCO HEALTHCARE/MALLINCKRODT-T200800769

PATIENT

DRUGS (6)
  1. ACETAMINOPHEN AND HYDROCODONE BITARTRATE [Suspect]
     Indication: PAIN
     Dosage: 10/325 MG, ONE TO TWO TABLETS Q6 , PRN
     Route: 048
     Dates: start: 20080306, end: 20080312
  2. COUMADIN [Concomitant]
     Dosage: UNK, QD
     Route: 048
  3. LASIX [Concomitant]
     Route: 048
     Dates: start: 20050101
  4. LISINOPRIL [Concomitant]
     Route: 048
  5. ASPIRIN [Concomitant]
     Indication: PAIN
     Dosage: 81 MG, QD
     Route: 048
     Dates: start: 20080306
  6. ACETAMINOPHEN [Concomitant]
     Dosage: 500 MG, QD
     Route: 048

REACTIONS (1)
  - OEDEMA PERIPHERAL [None]
